FAERS Safety Report 14435940 (Version 1)
Quarter: 2018Q1

REPORT INFORMATION
  Report Type: Spontaneous
  Country: US (occurrence: US)
  Receive Date: 20180124
  Receipt Date: 20180124
  Transmission Date: 20180509
  Serious: Yes (Hospitalization)
  Sender: FDA-Public Use
  Company Number: None

PATIENT
  Age: 67 Year
  Sex: Male
  Weight: 55.3 kg

DRUGS (4)
  1. AMLODIPINE [Concomitant]
     Active Substance: AMLODIPINE BESYLATE
  2. ATORVASTATIN [Concomitant]
     Active Substance: ATORVASTATIN
  3. PEMBROLIZUMAB 200MG [Suspect]
     Active Substance: PEMBROLIZUMAB
     Indication: OESOPHAGEAL CARCINOMA
     Route: 042
     Dates: start: 20180105, end: 20180105
  4. EPACADOSTAT 300MG [Suspect]
     Active Substance: EPACADOSTAT
     Indication: OESOPHAGEAL CARCINOMA
     Dosage: FREQUENCY - 2 BID
     Route: 048
     Dates: start: 20180105, end: 20180113

REACTIONS (2)
  - Abdominal pain [None]
  - Syncope [None]

NARRATIVE: CASE EVENT DATE: 20180113
